FAERS Safety Report 8818923 (Version 1)
Quarter: 2012Q4

REPORT INFORMATION
  Report Type: 
  Country: US (occurrence: US)
  Receive Date: 20121002
  Receipt Date: 20121002
  Transmission Date: 20130627
  Serious: No
  Sender: FDA-Public Use
  Company Number: US-009507513-1209USA001940

PATIENT
  Age: 46 Year
  Sex: Female

DRUGS (3)
  1. VICTRELIS [Suspect]
     Indication: HEPATITIS C
     Dosage: 4 DF, tid
     Route: 048
     Dates: start: 20120712, end: 20120831
  2. PEGASYS [Suspect]
     Dosage: UNK
     Dates: start: 20120712
  3. REBETOL [Suspect]
     Indication: HEPATITIS C
     Dosage: UNK
     Dates: start: 2012

REACTIONS (7)
  - Purpura [Unknown]
  - Abdominal pain [Unknown]
  - Increased tendency to bruise [Unknown]
  - Post procedural complication [Unknown]
  - Cognitive disorder [Unknown]
  - Arthralgia [Unknown]
  - Dizziness [Unknown]
